FAERS Safety Report 5521720-1 (Version None)
Quarter: 2007Q4

REPORT INFORMATION
  Report Type: 
  Country: None (occurrence: None)
  Receive Date: 20071120
  Receipt Date: 20071109
  Transmission Date: 20080405
  Serious: Yes (Hospitalization, Other)
  Sender: FDA-Public Use
  Company Number: PHHO2007US17509

PATIENT
  Age: 32 Year
  Sex: Female

DRUGS (1)
  1. MYFORTIC [Suspect]
     Indication: RENAL TRANSPLANT
     Dosage: UNK, UNK
     Dates: start: 20070330, end: 20071010

REACTIONS (14)
  - ACIDOSIS [None]
  - ANAEMIA [None]
  - ARTERIOVENOUS FISTULA THROMBOSIS [None]
  - BLOOD CREATININE INCREASED [None]
  - CHRONIC ALLOGRAFT NEPHROPATHY [None]
  - COUGH [None]
  - DIARRHOEA [None]
  - HYPERKALAEMIA [None]
  - OESOPHAGEAL FISTULA [None]
  - PYREXIA [None]
  - RENAL FAILURE [None]
  - SUBCLAVIAN ARTERY STENOSIS [None]
  - TRANSPLANT REJECTION [None]
  - UPPER RESPIRATORY TRACT INFECTION [None]
